FAERS Safety Report 19089879 (Version 1)
Quarter: 2021Q2

REPORT INFORMATION
  Report Type: Spontaneous
  Country: US (occurrence: US)
  Receive Date: 20210404
  Receipt Date: 20210404
  Transmission Date: 20210717
  Serious: No
  Sender: FDA-Public Use
  Company Number: US-JNJFOC-20210359682

PATIENT
  Age: 71 Year
  Sex: Female

DRUGS (2)
  1. ULTRAM [Suspect]
     Active Substance: TRAMADOL HYDROCHLORIDE
     Indication: NEURALGIA
  2. ULTRAM [Suspect]
     Active Substance: TRAMADOL HYDROCHLORIDE
     Indication: HERPES ZOSTER
     Route: 065

REACTIONS (2)
  - Off label use [Unknown]
  - Product use in unapproved indication [Unknown]
